FAERS Safety Report 4837196-3 (Version None)
Quarter: 2005Q4

REPORT INFORMATION
  Report Type: 
  Country: None (occurrence: None)
  Receive Date: 20051122
  Receipt Date: 20051108
  Transmission Date: 20060501
  Serious: Yes (Death, Hospitalization)
  Sender: FDA-Public Use
  Company Number: FACT0500669

PATIENT
  Age: 74 Year
  Sex: Male
  Weight: 91.2 kg

DRUGS (7)
  1. FACTIVE [Suspect]
     Indication: RESPIRATORY TRACT INFECTION BACTERIAL
     Dosage: ORAL
     Route: 048
     Dates: start: 20051028, end: 20051101
  2. FUROSEMIDE (FUORSEMIDE) [Concomitant]
  3. AVAPRO [Concomitant]
  4. COREG [Concomitant]
  5. TERAZOSIN (TERAZOSIN) [Concomitant]
  6. SPIRIVA [Concomitant]
  7. THEO-DUR [Concomitant]

REACTIONS (3)
  - CLOSTRIDIUM COLITIS [None]
  - MEGACOLON [None]
  - SEPSIS [None]
